FAERS Safety Report 15007346 (Version 1)
Quarter: 2018Q2

REPORT INFORMATION
  Report Type: Spontaneous
  Country: NL (occurrence: NL)
  Receive Date: 20180613
  Receipt Date: 20180613
  Transmission Date: 20180711
  Serious: Yes (Life-Threatening)
  Sender: FDA-Public Use
  Company Number: NL-TEVA-2018-NL-906800

PATIENT
  Age: 71 Year
  Sex: Female

DRUGS (5)
  1. SIMVASTATINE TABLET  40 MG [Concomitant]
  2. CHLOORTHALIDON 12,5 MG [Concomitant]
  3. FEXOFENADINE TABLET 120 MG [Concomitant]
  4. LISINOPRIL. [Suspect]
     Active Substance: LISINOPRIL
     Indication: PRODUCT USED FOR UNKNOWN INDICATION
     Dosage: 5 MILLIGRAM DAILY;
     Dates: start: 20180208, end: 20180325
  5. CHOLECALCIFEROL TABLET 12,5 MG [Concomitant]

REACTIONS (4)
  - Abdominal pain [Recovered/Resolved]
  - Headache [Recovered/Resolved]
  - Anaphylactic shock [Recovered/Resolved]
  - Diarrhoea [Recovered/Resolved]

NARRATIVE: CASE EVENT DATE: 20180325
